FAERS Safety Report 7688808-0 (Version None)
Quarter: 2011Q3

REPORT INFORMATION
  Report Type: 
  Country: None (occurrence: None)
  Receive Date: 20110817
  Receipt Date: 20110808
  Transmission Date: 20111222
  Serious: Yes (Other)
  Sender: FDA-Public Use
  Company Number: CN-ASTRAZENECA-2011SE46231

PATIENT
  Age: 62 Year
  Sex: Female
  Weight: 50 kg

DRUGS (6)
  1. FENTANYL [Suspect]
     Indication: ANAESTHESIA
  2. MIDAZOLAM HCL [Suspect]
  3. PROPOFOL [Suspect]
     Indication: ANAESTHESIA
     Dosage: 500 ML IN TOTAL
     Route: 042
  4. PROSTIGMIN BROMIDE [Suspect]
  5. PROPOFOL [Suspect]
     Dosage: DURING SECOND SURGERY
  6. TRACRIUM [Suspect]

REACTIONS (4)
  - TREMOR [None]
  - RESPIRATION ABNORMAL [None]
  - MENTAL STATUS CHANGES POSTOPERATIVE [None]
  - DYSPNOEA [None]
